FAERS Safety Report 15348811 (Version 1)
Quarter: 2018Q4

REPORT INFORMATION
  Report Type: Spontaneous
  Country: CA (occurrence: CA)
  Receive Date: 20180904
  Receipt Date: 20180904
  Transmission Date: 20190204
  Serious: Yes (Other)
  Sender: FDA-Public Use
  Company Number: CA-PFIZER INC-2018329032

PATIENT

DRUGS (3)
  1. BLEOMYCIN SULFATE [Suspect]
     Active Substance: BLEOMYCIN SULFATE
  2. CISPLATIN. [Suspect]
     Active Substance: CISPLATIN
     Dosage: UNK
  3. VINCA ALKALOIDS AND ANALOGUES [Suspect]
     Active Substance: UNSPECIFIED INGREDIENT

REACTIONS (2)
  - Haemolytic uraemic syndrome [Unknown]
  - Thrombotic thrombocytopenic purpura [Unknown]
